FAERS Safety Report 24773715 (Version 1)
Quarter: 2024Q4

REPORT INFORMATION
  Report Type: Spontaneous
  Country: JP (occurrence: JP)
  Receive Date: 20241225
  Receipt Date: 20241225
  Transmission Date: 20250114
  Serious: Yes (Other)
  Sender: Vantive US Healthcare
  Company Number: JP-VANTIVE-2024VAN021804

PATIENT
  Sex: Female

DRUGS (1)
  1. REGUNEAL HCA [Suspect]
     Active Substance: CALCIUM CHLORIDE\DEXTROSE MONOHYDRATE\HYDROCHLORIC ACID\MAGNESIUM CHLORIDE\SODIUM BICARBONATE\SODIUM
     Indication: Peritoneal dialysis
     Dosage: 1500ML
     Route: 033
     Dates: start: 20231201

REACTIONS (2)
  - Intestinal obstruction [Recovered/Resolved]
  - Nausea [Unknown]

NARRATIVE: CASE EVENT DATE: 20241212
